FAERS Safety Report 13513471 (Version 2)
Quarter: 2017Q2

REPORT INFORMATION
  Report Type: Spontaneous
  Country: US (occurrence: US)
  Receive Date: 20170504
  Receipt Date: 20170511
  Transmission Date: 20170830
  Serious: No
  Sender: FDA-Public Use
  Company Number: US-009507513-1705USA000975

PATIENT

DRUGS (1)
  1. NEXPLANON [Suspect]
     Active Substance: ETONOGESTREL
     Dosage: 1 DF, UNK
     Route: 059
     Dates: start: 20170303

REACTIONS (3)
  - Device kink [Not Recovered/Not Resolved]
  - Device breakage [Not Recovered/Not Resolved]
  - Complication associated with device [Not Recovered/Not Resolved]
